FAERS Safety Report 22249248 (Version 1)
Quarter: 2023Q2

REPORT INFORMATION
  Report Type: Spontaneous
  Country: US (occurrence: None)
  Receive Date: 20230421
  Receipt Date: 20230421
  Transmission Date: 20230722
  Serious: Yes (Hospitalization)
  Sender: FDA-Public Use
  Company Number: None

PATIENT
  Age: 80 Year
  Sex: Male

DRUGS (1)
  1. LENALIDOMIDE [Suspect]
     Active Substance: LENALIDOMIDE
     Indication: Plasma cell myeloma
     Dosage: 15MG FOR 21 DAYS ON, 7   DAILY ORAL?
     Dates: start: 202207

REACTIONS (4)
  - Pneumonia bacterial [None]
  - Upper respiratory tract infection [None]
  - Product dose omission in error [None]
  - Skin disorder [None]

NARRATIVE: CASE EVENT DATE: 20230331
